FAERS Safety Report 5046215-3 (Version None)
Quarter: 2006Q2

REPORT INFORMATION
  Report Type: 
  Country: None (occurrence: None)
  Receive Date: 20060629
  Receipt Date: 20060615
  Transmission Date: 20061013
  Serious: Yes (Hospitalization)
  Sender: FDA-Public Use
  Company Number: 2006076276

PATIENT
  Age: 82 Year
  Sex: Female

DRUGS (2)
  1. DETROL LA [Suspect]
     Indication: HYPERTONIC BLADDER
     Dosage: 4 MG (4 MG 1 IN 1 D) ORAL
     Route: 048
  2. ARICEPT [Concomitant]

REACTIONS (3)
  - HYPERTENSION [None]
  - NIGHTMARE [None]
  - URINARY TRACT INFECTION [None]
